FAERS Safety Report 9909128 (Version 1)
Quarter: 2014Q1

REPORT INFORMATION
  Report Type: Spontaneous
  Country: DE (occurrence: DE)
  Receive Date: 20140219
  Receipt Date: 20140219
  Transmission Date: 20141002
  Serious: Yes (Hospitalization)
  Sender: FDA-Public Use
  Company Number: DE-PFIZER INC-2014042767

PATIENT
  Age: 7 Decade
  Sex: Male

DRUGS (1)
  1. VFEND [Suspect]
     Indication: BRAIN ABSCESS
     Dosage: 800 MG, 2X/DAY

REACTIONS (1)
  - Condition aggravated [Unknown]
